FAERS Safety Report 23641533 (Version 1)
Quarter: 2024Q1

REPORT INFORMATION
  Report Type: Spontaneous
  Country: FR (occurrence: FR)
  Receive Date: 20240318
  Receipt Date: 20240318
  Transmission Date: 20240410
  Serious: Yes (Hospitalization)
  Sender: FDA-Public Use
  Company Number: None

PATIENT
  Age: 29 Year
  Sex: Female

DRUGS (2)
  1. QUETIAPINE [Suspect]
     Active Substance: QUETIAPINE
     Indication: Mental disorder
     Dosage: DAILY DOSE: 600 MILLIGRAM
     Route: 048
     Dates: start: 202112, end: 202207
  2. OLANZAPINE [Suspect]
     Active Substance: OLANZAPINE
     Indication: Mental disorder
     Dosage: DAILY DOSE: 20 MILLIGRAM
     Dates: start: 202111, end: 202111

REACTIONS (4)
  - Suicidal ideation [Unknown]
  - Mental impairment [Unknown]
  - Abnormal weight gain [Recovered/Resolved]
  - Oedema peripheral [Recovered/Resolved]

NARRATIVE: CASE EVENT DATE: 20211101
